FAERS Safety Report 7287568-5 (Version None)
Quarter: 2011Q1

REPORT INFORMATION
  Report Type: 
  Country: None (occurrence: None)
  Receive Date: 20110211
  Receipt Date: 20110202
  Transmission Date: 20110831
  Serious: Yes (Disabling)
  Sender: FDA-Public Use
  Company Number: SE-AMGEN-SWESP2011003553

PATIENT
  Age: 34 Year
  Sex: Female

DRUGS (7)
  1. ETANERCEPT [Suspect]
     Indication: JUVENILE ARTHRITIS
     Dosage: 50 MG, QWK
     Dates: start: 20090309, end: 20101227
  2. DUOTRAV [Concomitant]
     Dosage: UNK
  3. FOLACIN [Concomitant]
     Dosage: UNK
  4. ACETAMINOPHEN [Concomitant]
     Dosage: UNK
  5. CITODON                            /00116401/ [Concomitant]
     Dosage: UNK
  6. METHOTREXATE [Concomitant]
     Dosage: 12.5 MG, UNK
     Dates: start: 20100706
  7. PRONAXEN [Concomitant]
     Dosage: UNK

REACTIONS (2)
  - VISUAL IMPAIRMENT [None]
  - MACULAR OEDEMA [None]
